FAERS Safety Report 10026855 (Version 2)
Quarter: 2014Q2

REPORT INFORMATION
  Report Type: Spontaneous
  Country: GB (occurrence: GB)
  Receive Date: 20140321
  Receipt Date: 20140501
  Transmission Date: 20141212
  Serious: Yes (Death, Other)
  Sender: FDA-Public Use
  Company Number: GB-CELGENEUS-167-21660-14031324

PATIENT
  Age: 42 Year
  Sex: Female
  Weight: 64 kg

DRUGS (6)
  1. ABRAXANE [Suspect]
     Indication: BREAST CANCER
     Dosage: 430 MILLIGRAM
     Route: 041
     Dates: start: 20140207, end: 20140207
  2. SODIUM CHLORIDE [Suspect]
     Indication: BREAST CANCER
     Route: 041
     Dates: start: 20140207, end: 20140207
  3. DOMPERIDONE [Suspect]
     Indication: ANTIEMETIC SUPPORTIVE CARE
     Dosage: 30 MILLIGRAM
     Route: 048
  4. PALONOSETRON [Suspect]
     Indication: ANTIEMETIC SUPPORTIVE CARE
     Dosage: 250 MILLIGRAM
     Route: 040
     Dates: start: 20140207
  5. PEGFILGRASTIM [Suspect]
     Indication: PRODUCT USED FOR UNKNOWN INDICATION
     Dosage: 6 MILLIGRAM
     Route: 058
     Dates: start: 20140208
  6. FLUCONAZOLE [Suspect]
     Indication: ORAL CANDIDIASIS
     Dosage: 50 MILLIGRAM
     Route: 048
     Dates: start: 20140212, end: 20140213

REACTIONS (6)
  - Renal failure [Fatal]
  - Hypophagia [Not Recovered/Not Resolved]
  - Oropharyngeal pain [Not Recovered/Not Resolved]
  - Pain in extremity [Not Recovered/Not Resolved]
  - Oral candidiasis [Unknown]
  - Mucosal inflammation [Not Recovered/Not Resolved]
